FAERS Safety Report 16672288 (Version 2)
Quarter: 2020Q4

REPORT INFORMATION
  Report Type: Spontaneous
  Country: FR (occurrence: FR)
  Receive Date: 20190806
  Receipt Date: 20201105
  Transmission Date: 20210113
  Serious: Yes (Hospitalization, Other)
  Sender: FDA-Public Use
  Company Number: FR-AUROBINDO-AUR-APL-2019-052039

PATIENT
  Age: 34 Year
  Sex: Female

DRUGS (4)
  1. ESOMEPRAZOLE. [Suspect]
     Active Substance: ESOMEPRAZOLE MAGNESIUM
     Indication: METABOLIC ACIDOSIS
     Dosage: 40 MILLIGRAM, ONCE A DAY
     Route: 048
     Dates: start: 2018, end: 2018
  2. ESOMEPRAZOLE. [Suspect]
     Active Substance: ESOMEPRAZOLE MAGNESIUM
     Indication: ANTACID THERAPY
  3. RANITIDINE. [Suspect]
     Active Substance: RANITIDINE
     Indication: METABOLIC ACIDOSIS
     Dosage: 300 MILLIGRAM, ONCE A DAY
     Route: 048
     Dates: start: 2018, end: 2018
  4. RANITIDINE. [Suspect]
     Active Substance: RANITIDINE
     Indication: ANTACID THERAPY

REACTIONS (10)
  - Weight decreased [Unknown]
  - Renal failure [Recovering/Resolving]
  - Accidental overdose [Recovering/Resolving]
  - Gastritis [Unknown]
  - Blood creatinine increased [Recovering/Resolving]
  - Decreased appetite [Unknown]
  - Drug interaction [Recovering/Resolving]
  - Overdose [Unknown]
  - Condition aggravated [Recovering/Resolving]
  - Metabolic acidosis [Unknown]

NARRATIVE: CASE EVENT DATE: 2018
